FAERS Safety Report 6014240-1 (Version None)
Quarter: 2008Q4

REPORT INFORMATION
  Report Type: 
  Country: None (occurrence: None)
  Receive Date: 20081219
  Receipt Date: 20080229
  Transmission Date: 20090506
  Serious: No
  Sender: FDA-Public Use
  Company Number: A0712751A

PATIENT
  Age: 47 Year
  Sex: Male

DRUGS (8)
  1. AVODART [Suspect]
     Dosage: 1CAP PER DAY
     Route: 048
     Dates: start: 20071001
  2. PROPECIA [Concomitant]
  3. PRILOSEC [Concomitant]
  4. SUPPLEMENT [Concomitant]
  5. SAW PALMETTO [Concomitant]
  6. GINSENG [Concomitant]
  7. MULTI-VITAMIN [Concomitant]
  8. GLUCOSAMINE CHONDROITIN [Concomitant]

REACTIONS (4)
  - ABDOMINAL DISTENSION [None]
  - CONSTIPATION [None]
  - DIARRHOEA [None]
  - FLATULENCE [None]
